FAERS Safety Report 5233526-1 (Version None)
Quarter: 2007Q1

REPORT INFORMATION
  Report Type: 
  Country: None (occurrence: None)
  Receive Date: 20061204
  Receipt Date: 20060818
  Transmission Date: 20070707
  Serious: No
  Sender: FDA-Public Use
  Company Number: 2006-BP-05657BP

PATIENT
  Sex: Male

DRUGS (7)
  1. SPIRIVA [Suspect]
     Indication: CHRONIC OBSTRUCTIVE PULMONARY DISEASE
     Dosage: 18 MG (18 MG,1 IN 1 D),IH
     Route: 055
     Dates: start: 20041201
  2. ADVAIR (SERETIDE /01420901/) [Concomitant]
  3. MAXZIDE [Concomitant]
  4. NORVASC [Concomitant]
  5. LIPITOR [Concomitant]
  6. AMBIEN [Concomitant]
  7. ALBUTEROL [Concomitant]

REACTIONS (1)
  - AGEUSIA [None]
